FAERS Safety Report 9294499 (Version 1)
Quarter: 2013Q2

REPORT INFORMATION
  Report Type: Spontaneous
  Country: DE (occurrence: DE)
  Receive Date: 20130516
  Receipt Date: 20130516
  Transmission Date: 20140414
  Serious: Yes (Hospitalization, Other)
  Sender: FDA-Public Use
  Company Number: DE-UCBSA-081608

PATIENT
  Age: 71 Year
  Sex: Female

DRUGS (12)
  1. CIMZIA [Suspect]
     Indication: POLYARTHRITIS
     Dosage: 200, STARTED APPROXIMATELY 2 YEARS
     Route: 058
     Dates: end: 2013
  2. RAMIPRIL [Concomitant]
     Dosage: DOSE PER INTAKE:5
  3. AMLODIPIN [Concomitant]
     Dosage: DOSE PER INTAKE:5
  4. ASS [Concomitant]
     Dosage: DOSE PER INTAKE:100
  5. PREGABALIN [Concomitant]
     Dosage: DOSE PER INTAKE:50
  6. SIMVASTATIN [Concomitant]
     Dosage: DOSE PER INTAKE: 20
  7. PANTOPRAZOLE [Concomitant]
     Dosage: DOSE PER INTAKE:40
  8. MACROGOL [Concomitant]
  9. PARACETAMOL [Concomitant]
     Indication: HEADACHE
     Dosage: DOSE PER INTAKE: 500; TOTAL DAILY DOSE: 2000
     Route: 048
  10. SITAGLIPTIN/METFORMIN [Concomitant]
     Dosage: 50/1000
  11. SITAGLIPTIN/METFORMIN [Concomitant]
     Dosage: 50/1000
  12. PROTAPHANE [Concomitant]

REACTIONS (3)
  - Cerebral infarction [Not Recovered/Not Resolved]
  - Monoparesis [Not Recovered/Not Resolved]
  - Visual acuity reduced [Not Recovered/Not Resolved]
